FAERS Safety Report 21050961 (Version 2)
Quarter: 2022Q3

REPORT INFORMATION
  Report Type: Report from Study
  Country: US (occurrence: US)
  Receive Date: 20220707
  Receipt Date: 20220904
  Transmission Date: 20221026
  Serious: Yes (Other)
  Sender: FDA-Public Use
  Company Number: US-BEH-2022145726

PATIENT
  Age: 51 Year
  Sex: Female
  Weight: 90.703 kg

DRUGS (8)
  1. HIZENTRA [Interacting]
     Active Substance: HUMAN IMMUNOGLOBULIN G
     Indication: Primary immunodeficiency syndrome
     Dosage: UNK
     Route: 058
     Dates: start: 20220513
  2. HIZENTRA [Interacting]
     Active Substance: HUMAN IMMUNOGLOBULIN G
     Dosage: UNK
     Route: 058
     Dates: start: 20220506
  3. HIZENTRA [Interacting]
     Active Substance: HUMAN IMMUNOGLOBULIN G
     Dosage: 10 GRAM, QW
     Route: 058
     Dates: start: 20220429
  4. HIZENTRA [Interacting]
     Active Substance: HUMAN IMMUNOGLOBULIN G
     Dosage: 10 GRAM, QW
     Route: 058
  5. HIZENTRA [Interacting]
     Active Substance: HUMAN IMMUNOGLOBULIN G
     Dosage: UNK
     Route: 058
     Dates: start: 20220624
  6. BENADRYL [Interacting]
     Active Substance: DIPHENHYDRAMINE HYDROCHLORIDE
     Indication: Premedication
  7. TRAMADOL [Interacting]
     Active Substance: TRAMADOL
     Dosage: UNK
  8. CORTISONE [Concomitant]
     Active Substance: CORTISONE
     Dosage: UNK
     Dates: start: 20220622

REACTIONS (25)
  - Infusion site extravasation [Unknown]
  - Needle issue [Unknown]
  - Infusion site haemorrhage [Unknown]
  - Fatigue [Not Recovered/Not Resolved]
  - Infusion site nodule [Unknown]
  - Injection site extravasation [Not Recovered/Not Resolved]
  - Head discomfort [Unknown]
  - Drug interaction [Unknown]
  - Dyspnoea [Unknown]
  - Drug interaction [Unknown]
  - Muscle tightness [Unknown]
  - Drug interaction [Unknown]
  - Feeling hot [Unknown]
  - Drug interaction [Unknown]
  - Loss of consciousness [Unknown]
  - Drug interaction [Unknown]
  - Oxygen saturation decreased [Unknown]
  - Drug interaction [Unknown]
  - Heart rate increased [Unknown]
  - Drug interaction [Unknown]
  - Heart rate decreased [Unknown]
  - Drug interaction [Unknown]
  - Somnolence [Not Recovered/Not Resolved]
  - Headache [Unknown]
  - Myalgia [Unknown]

NARRATIVE: CASE EVENT DATE: 20220429
